FAERS Safety Report 23106291 (Version 1)
Quarter: 2023Q4

REPORT INFORMATION
  Report Type: Report from Study
  Country: CA (occurrence: CA)
  Receive Date: 20231025
  Receipt Date: 20231025
  Transmission Date: 20240110
  Serious: Yes (Death)
  Sender: FDA-Public Use
  Company Number: CA-VER-202300442

PATIENT
  Age: 70 Year
  Sex: Male

DRUGS (3)
  1. TRIPTORELIN PAMOATE [Suspect]
     Active Substance: TRIPTORELIN PAMOATE
     Indication: Prostate cancer
     Dosage: 11.25 MILLIGRAM, ONCE / 3 MONTHS (11.25 MG,3 M)
     Route: 030
     Dates: start: 20230104, end: 20230104
  2. TRIPTORELIN PAMOATE [Suspect]
     Active Substance: TRIPTORELIN PAMOATE
     Indication: Prostate cancer
     Dosage: 11.25 MILLIGRAM, ONCE / 3 MONTHS (11.25 MG,3 M)
     Route: 030
     Dates: start: 20230406, end: 20230406
  3. TRIPTORELIN PAMOATE [Suspect]
     Active Substance: TRIPTORELIN PAMOATE
     Indication: Prostate cancer
     Dosage: 11.25 MILLIGRAM, ONCE / 3 MONTHS (11.25 MG,3 M)
     Route: 030
     Dates: start: 20230706, end: 20230706

REACTIONS (1)
  - Death [Fatal]

NARRATIVE: CASE EVENT DATE: 20230901
